FAERS Safety Report 10102473 (Version 1)
Quarter: 2014Q2

REPORT INFORMATION
  Report Type: Spontaneous
  Country: JP (occurrence: JP)
  Receive Date: 20140424
  Receipt Date: 20140424
  Transmission Date: 20141212
  Serious: Yes (Other)
  Sender: FDA-Public Use
  Company Number: JP-ACTAVIS-2014-07864

PATIENT
  Age: 47 Year
  Sex: Male

DRUGS (3)
  1. OXALIPLATIN (UNKNOWN) [Suspect]
     Indication: RECTAL CANCER STAGE III
     Dosage: UNK
     Route: 065
  2. FLUOROURACIL [Concomitant]
     Indication: RECTAL CANCER STAGE III
     Dosage: UNK
     Route: 065
  3. FOLINIC ACID [Concomitant]
     Indication: RECTAL CANCER STAGE III
     Dosage: UNK
     Route: 065

REACTIONS (1)
  - Drug-induced liver injury [Recovered/Resolved]
